FAERS Safety Report 4482027-7 (Version None)
Quarter: 2004Q3

REPORT INFORMATION
  Report Type: 
  Country: None (occurrence: None)
  Receive Date: 20040921
  Receipt Date: 20031210
  Transmission Date: 20050211
  Serious: Yes (Other)
  Sender: FDA-Public Use
  Company Number: 163-20785-03070199

PATIENT
  Age: 54 Year
  Sex: Female

DRUGS (5)
  1. THALOMID [Suspect]
     Indication: CROHN'S DISEASE
     Dosage: 200 MG, DAILY, ORAL
     Route: 048
     Dates: start: 20030619
  2. COUMADIN [Concomitant]
  3. LEVAQUIN [Concomitant]
  4. METHOTREXATE [Concomitant]
  5. FOLIC ACID [Concomitant]

REACTIONS (3)
  - ANAEMIA [None]
  - LEUKOPENIA [None]
  - OEDEMA PERIPHERAL [None]
